FAERS Safety Report 18273373 (Version 1)
Quarter: 2020Q3

REPORT INFORMATION
  Report Type: Spontaneous
  Country: US (occurrence: US)
  Receive Date: 20200916
  Receipt Date: 20200916
  Transmission Date: 20201103
  Serious: No
  Sender: FDA-Public Use
  Company Number: US-THERAPEUTICSMD-2020TMD03459

PATIENT
  Sex: Female
  Weight: 65.77 kg

DRUGS (2)
  1. IMVEXXY [Suspect]
     Active Substance: ESTRADIOL
     Indication: VAGINAL DISORDER
     Dosage: UNK, AS DIRECTED SAMPLES FOR ABOUT A WEEK
     Dates: start: 2020, end: 2020
  2. ESTRADIOL CREAM [Suspect]
     Active Substance: ESTRADIOL HEMIHYDRATE
     Indication: VAGINAL DISORDER
     Dosage: 0.5 MG, 2X/WEEK
     Route: 067
     Dates: start: 2020, end: 2020

REACTIONS (5)
  - Therapeutic product effect incomplete [Not Recovered/Not Resolved]
  - Urinary incontinence [Not Recovered/Not Resolved]
  - Burning sensation [Unknown]
  - Pruritus [Unknown]
  - Hypersensitivity [Unknown]

NARRATIVE: CASE EVENT DATE: 2020
